FAERS Safety Report 8733667 (Version 2)
Quarter: 2021Q3

REPORT INFORMATION
  Report Type: Report from Study
  Country: CA (occurrence: CA)
  Receive Date: 20120821
  Receipt Date: 20210927
  Transmission Date: 20211014
  Serious: Yes (Other)
  Sender: FDA-Public Use
  Company Number: CA-JNJFOC-20120807719

PATIENT
  Age: 36 Year
  Sex: Male
  Weight: 77 kg

DRUGS (1)
  1. REMICADE [Suspect]
     Active Substance: INFLIXIMAB
     Indication: CROHN^S DISEASE
     Route: 042
     Dates: start: 20100805, end: 20141210

REACTIONS (4)
  - Off label use [Unknown]
  - Product use issue [Unknown]
  - Fall [Unknown]
  - Face injury [Unknown]

NARRATIVE: CASE EVENT DATE: 20100805
